FAERS Safety Report 4437967-1 (Version None)
Quarter: 2004Q3

REPORT INFORMATION
  Report Type: 
  Country: None (occurrence: None)
  Receive Date: 20040831
  Receipt Date: 20040630
  Transmission Date: 20050211
  Serious: Yes (Life-Threatening, Hospitalization)
  Sender: FDA-Public Use
  Company Number: US-ROCHE-372529

PATIENT
  Age: 45 Year
  Sex: Male
  Weight: 9.1 kg

DRUGS (9)
  1. PEG-INTERFERON ALFA 2A (RO 25-8310) [Suspect]
     Dosage: UNKNOWN DOSE GIVEN WEEKLY
     Route: 058
     Dates: start: 20040113, end: 20040615
  2. RIBAVIRIN [Suspect]
     Dosage: GIVEN DAILY
     Route: 048
     Dates: start: 20040113, end: 20040619
  3. LEXAPRO [Suspect]
     Indication: DRUG USE FOR UNKNOWN INDICATION
     Route: 065
     Dates: start: 20040323
  4. MULTI-VITAMINS [Concomitant]
     Dates: start: 19960615
  5. VITAMIN E [Concomitant]
  6. AMBIEN [Concomitant]
     Dates: start: 20040513
  7. HYDROCODONE [Concomitant]
     Dosage: TOTAL DAILY DOSE WAS VARIABLE
     Dates: start: 20040404
  8. IBUPROFEN [Concomitant]
     Dosage: TOTAL DAILY DOSE WAS VARIABLE
  9. LOTRISONE [Concomitant]
     Dates: start: 20040317

REACTIONS (10)
  - ALANINE AMINOTRANSFERASE INCREASED [None]
  - ANXIETY [None]
  - ASPARTATE AMINOTRANSFERASE INCREASED [None]
  - HOMICIDAL IDEATION [None]
  - NAUSEA [None]
  - OVERDOSE [None]
  - PARANOIA [None]
  - PSYCHOTIC DISORDER [None]
  - SUICIDE ATTEMPT [None]
  - TREMOR [None]
